FAERS Safety Report 4497619-9 (Version None)
Quarter: 2004Q4

REPORT INFORMATION
  Report Type: 
  Country: None (occurrence: None)
  Receive Date: 20041105
  Receipt Date: 20041021
  Transmission Date: 20050328
  Serious: Yes (Hospitalization)
  Sender: FDA-Public Use
  Company Number: US-JNJFOC-20041006913

PATIENT
  Age: 53 Year
  Sex: Male

DRUGS (1)
  1. DURAGESIC [Suspect]
     Route: 062

REACTIONS (2)
  - INTENTIONAL MISUSE [None]
  - LOSS OF CONSCIOUSNESS [None]
